FAERS Safety Report 15744843 (Version 2)
Quarter: 2018Q4

REPORT INFORMATION
  Report Type: Spontaneous
  Country: FR (occurrence: FR)
  Receive Date: 20181220
  Receipt Date: 20181224
  Transmission Date: 20190205
  Serious: Yes (Hospitalization)
  Sender: FDA-Public Use
  Company Number: FR-TEVA-2018-FR-989156

PATIENT
  Age: 72 Year
  Sex: Male
  Weight: 77 kg

DRUGS (2)
  1. CLOPIDOGREL (B?SILATE DE) [Suspect]
     Active Substance: CLOPIDOGREL BESILATE
     Indication: PERIPHERAL ARTERIAL OCCLUSIVE DISEASE
     Dosage: 75 ML DAILY;
     Route: 048
     Dates: end: 20180621
  2. PREVISCAN (FLUINDIONE) [Suspect]
     Active Substance: FLUINDIONE
     Indication: MITRAL VALVE REPLACEMENT
     Dosage: ACCORDING TO INR
     Route: 048
     Dates: end: 20180621

REACTIONS (3)
  - Haematemesis [Recovered/Resolved]
  - Haemorrhagic anaemia [Recovered/Resolved]
  - Melaena [Recovered/Resolved]

NARRATIVE: CASE EVENT DATE: 20180621
